FAERS Safety Report 7950730-X (Version None)
Quarter: 2011Q4

REPORT INFORMATION
  Report Type: 
  Country: None (occurrence: None)
  Receive Date: 20111123
  Receipt Date: 20111107
  Transmission Date: 20120403
  Serious: Yes (Death, Hospitalization)
  Sender: FDA-Public Use
  Company Number: UTC-012112

PATIENT
  Age: 32 Year
  Sex: Male
  Weight: 107.7 kg

DRUGS (8)
  1. REMODULIN [Suspect]
     Indication: COR PULMONALE CHRONIC
     Dosage: 14.4 UG/KG (0.01 UG/KG, 1 IN 1 MIN), INTRAVENOUS
     Route: 042
     Dates: start: 20110930
  2. REVATIO [Concomitant]
  3. DIURETICS [Concomitant]
  4. POTASSIUM ACETATE [Concomitant]
  5. ASPIRIN [Concomitant]
  6. COREG [Concomitant]
  7. VASOTEC [Concomitant]
  8. COUMADIN [Concomitant]

REACTIONS (3)
  - CEREBROVASCULAR ACCIDENT [None]
  - CEREBRAL HAEMORRHAGE [None]
  - PYREXIA [None]
